FAERS Safety Report 12524130 (Version 2)
Quarter: 2016Q3

REPORT INFORMATION
  Report Type: Report from Study
  Country: US (occurrence: US)
  Receive Date: 20160704
  Receipt Date: 20160713
  Transmission Date: 20161109
  Serious: Yes (Hospitalization)
  Sender: FDA-Public Use
  Company Number: US-BAUSCH-BL-2016-015391

PATIENT
  Age: 38 Day
  Sex: Female
  Weight: 1.9 kg

DRUGS (2)
  1. TIMOLOL. [Suspect]
     Active Substance: TIMOLOL
     Indication: HAEMANGIOMA OF SKIN
     Dosage: 0.52 MG/KG/DAY, ONE DROP ON THE EYELID AND ONE DROP INTRAOCULARLY
  2. TIMOLOL. [Suspect]
     Active Substance: TIMOLOL
     Indication: EYELID PTOSIS
     Dosage: ONE DROP
     Route: 047

REACTIONS (3)
  - Bradycardia [Recovered/Resolved]
  - Hypothermia [Recovered/Resolved]
  - Lethargy [Recovered/Resolved]
